FAERS Safety Report 16159228 (Version 1)
Quarter: 2019Q2

REPORT INFORMATION
  Report Type: Spontaneous
  Country: GB (occurrence: GB)
  Receive Date: 20190404
  Receipt Date: 20190404
  Transmission Date: 20190711
  Serious: Yes (Other)
  Sender: FDA-Public Use
  Company Number: GB-PERRIGO-19GB004081

PATIENT
  Age: 58 Year
  Sex: Female

DRUGS (9)
  1. TRASTUZUMAB. [Suspect]
     Active Substance: TRASTUZUMAB
     Indication: BREAST CANCER
     Dosage: 425 MG, EVERY 3 WEEKS
     Route: 042
     Dates: start: 20181011
  2. DOCETAXEL. [Suspect]
     Active Substance: DOCETAXEL
     Indication: BREAST CANCER
     Dosage: UNK (PREVIOUS CYCLE)
     Route: 042
  3. SODIUM CHLORIDE. [Suspect]
     Active Substance: SODIUM CHLORIDE
     Indication: PRODUCT USED FOR UNKNOWN INDICATION
     Dosage: UNK
     Route: 042
     Dates: start: 20181011
  4. WATER FOR INJECTIONS [Suspect]
     Active Substance: WATER
     Indication: MEDICATION DILUTION
     Dosage: UNK
     Route: 042
     Dates: start: 20181011
  5. MAGNASPARTATE [Concomitant]
     Indication: BLOOD MAGNESIUM DECREASED
     Dosage: SACHETS
     Route: 048
     Dates: start: 20181006, end: 20181010
  6. PERTUZUMAB. [Suspect]
     Active Substance: PERTUZUMAB
     Indication: BREAST CANCER
     Dosage: 420 MG, EVERY 3 WEEKS
     Route: 042
     Dates: start: 20181011
  7. DOCETAXEL. [Suspect]
     Active Substance: DOCETAXEL
     Dosage: 63 MG, WEEKLY (REDUCED FROM PREVIOUS CYCLE)
     Route: 042
     Dates: start: 20181011
  8. LOPERAMIDE HYDROCHLORIDE. [Suspect]
     Active Substance: LOPERAMIDE HYDROCHLORIDE
     Indication: DIARRHOEA
     Dosage: 2 MG, PRN
     Route: 048
  9. COLESTIPOL [Suspect]
     Active Substance: COLESTIPOL
     Indication: DIARRHOEA
     Dosage: 2 SACHETS, QD
     Route: 065
     Dates: start: 20181011

REACTIONS (3)
  - Body temperature decreased [Recovered/Resolved]
  - Malaise [Recovered/Resolved]
  - Blood magnesium decreased [Recovered/Resolved]

NARRATIVE: CASE EVENT DATE: 20181031
